FAERS Safety Report 4269387-7 (Version None)
Quarter: 2004Q1

REPORT INFORMATION
  Report Type: 
  Country: None (occurrence: None)
  Receive Date: 20040113
  Receipt Date: 20030919
  Transmission Date: 20041129
  Serious: Yes (Other)
  Sender: FDA-Public Use
  Company Number: WAES 0309GBR00223

PATIENT

DRUGS (2)
  1. FOSAMAX [Suspect]
     Dates: start: 20000101, end: 20020101
  2. FOSAMAX [Suspect]
     Dates: start: 20020101

REACTIONS (3)
  - DRUG EXPOSURE DURING PREGNANCY [None]
  - PREGNANCY [None]
  - VESICOURETERIC REFLUX [None]
